FAERS Safety Report 6961783-X (Version None)
Quarter: 2010Q3

REPORT INFORMATION
  Report Type: 
  Country: None (occurrence: None)
  Receive Date: 20100901
  Receipt Date: 20100826
  Transmission Date: 20110219
  Serious: Yes (Hospitalization, Other)
  Sender: FDA-Public Use
  Company Number: AU-AMGEN-KDL412094

PATIENT
  Sex: Male
  Weight: 77 kg

DRUGS (10)
  1. NEULASTA [Suspect]
     Indication: CHEMOTHERAPY
     Route: 058
     Dates: start: 20090210
  2. DIAMICRON [Concomitant]
  3. CYCLOPHOSPHAMIDE [Concomitant]
     Dates: start: 20090209
  4. DOXORUBICIN HYDROCHLORIDE [Concomitant]
     Dates: start: 20090209
  5. ONCOVIN [Concomitant]
     Dates: start: 20090209
  6. PREDNISONE [Concomitant]
     Dates: start: 20090209
  7. RITUXIMAB [Concomitant]
     Dates: start: 20090209
  8. LIPITOR [Concomitant]
  9. DEXAMETHASONE [Concomitant]
     Dates: start: 20090209, end: 20090213
  10. ACETAMINOPHEN [Concomitant]

REACTIONS (6)
  - ANXIETY [None]
  - BACK PAIN [None]
  - INSOMNIA [None]
  - PAIN [None]
  - PANIC ATTACK [None]
  - PSYCHOTIC DISORDER [None]
